FAERS Safety Report 6718344-7 (Version None)
Quarter: 2010Q2

REPORT INFORMATION
  Report Type: 
  Country: None (occurrence: None)
  Receive Date: 20100505
  Receipt Date: 20100420
  Transmission Date: 20101027
  Serious: Yes (Hospitalization)
  Sender: FDA-Public Use
  Company Number: 2010001645

PATIENT
  Age: 52 Year
  Sex: Male
  Weight: 61 kg

DRUGS (2)
  1. ERLOTINIB HYDROCHLORIDE [Suspect]
     Indication: LUNG ADENOCARCINOMA
     Dosage: 150 MG, QD, ORAL
     Route: 048
     Dates: start: 20080802, end: 20091012
  2. ZANTAC 150 [Concomitant]

REACTIONS (6)
  - DISEASE PROGRESSION [None]
  - HAEMOPTYSIS [None]
  - LUNG ADENOCARCINOMA [None]
  - RASH [None]
  - RESUSCITATION [None]
  - WHITE BLOOD CELL COUNT INCREASED [None]
